FAERS Safety Report 9135416 (Version 1)
Quarter: 2013Q1

REPORT INFORMATION
  Report Type: Spontaneous
  Country: US (occurrence: US)
  Receive Date: 20130304
  Receipt Date: 20130304
  Transmission Date: 20140127
  Serious: No
  Sender: FDA-Public Use
  Company Number: US-ENDO PHARMACEUTICALS INC.-ENDC20110101

PATIENT
  Sex: Female

DRUGS (1)
  1. ENDOCET [Suspect]
     Indication: PAIN
     Dosage: 40/1300 MG
     Route: 048
     Dates: start: 2009, end: 20110709

REACTIONS (4)
  - Bedridden [Recovering/Resolving]
  - Muscle spasms [Recovering/Resolving]
  - Somnolence [Recovering/Resolving]
  - Arthralgia [Recovering/Resolving]
